FAERS Safety Report 21222548 (Version 1)
Quarter: 2022Q3

REPORT INFORMATION
  Report Type: Spontaneous
  Country: US (occurrence: None)
  Receive Date: 20220816
  Receipt Date: 20220816
  Transmission Date: 20221026
  Serious: No
  Sender: FDA-Public Use
  Company Number: None

PATIENT
  Age: 42 Year
  Sex: Female

DRUGS (2)
  1. AUSTEDO [Suspect]
     Active Substance: DEUTETRABENAZINE
     Indication: Schizoaffective disorder bipolar type
     Dosage: FREQUENCY : TWICE A DAY;?
     Route: 048
  2. AUSTEDO [Suspect]
     Active Substance: DEUTETRABENAZINE
     Indication: Schizoaffective disorder bipolar type
     Dosage: FREQUENCY : TWICE A DAY;?
     Route: 048

REACTIONS (1)
  - Chest pain [None]

NARRATIVE: CASE EVENT DATE: 20220815
